FAERS Safety Report 7623868-4 (Version None)
Quarter: 2011Q3

REPORT INFORMATION
  Report Type: 
  Country: None (occurrence: None)
  Receive Date: 20110712
  Receipt Date: 20110627
  Transmission Date: 20111222
  Serious: Yes (Hospitalization)
  Sender: FDA-Public Use
  Company Number: 1000021959

PATIENT
  Age: 71 Year
  Sex: Female
  Weight: 70 kg

DRUGS (4)
  1. BISOPROLOL FUMARATE [Concomitant]
  2. NEPRESOL (DIHYDRALAZINE SULFATE) (DIHYDRALAZINE SULFATE) [Concomitant]
  3. LITHIUM CARBONATE [Suspect]
     Dosage: 450 MG (450 MG, 1 IN 1 D), ORAL
     Route: 048
  4. CITALOPRAM HYDROBROMIDE [Suspect]
     Dosage: OVERDOSE: 60 MG DAILY DOSAGE), ORAL
     Route: 048
     Dates: start: 20101101, end: 20110201

REACTIONS (10)
  - PARKINSON'S DISEASE [None]
  - BRADYKINESIA [None]
  - ACTIVITIES OF DAILY LIVING IMPAIRED [None]
  - ALANINE AMINOTRANSFERASE INCREASED [None]
  - TRANSAMINASES INCREASED [None]
  - DRUG LEVEL ABOVE THERAPEUTIC [None]
  - DRUG INTERACTION [None]
  - PARKINSONISM [None]
  - ASPARTATE AMINOTRANSFERASE INCREASED [None]
  - GAMMA-GLUTAMYLTRANSFERASE INCREASED [None]
